FAERS Safety Report 15851253 (Version 1)
Quarter: 2019Q1

REPORT INFORMATION
  Report Type: Report from Study
  Country: BR (occurrence: BR)
  Receive Date: 20190122
  Receipt Date: 20190122
  Transmission Date: 20190417
  Serious: Yes (Hospitalization)
  Sender: FDA-Public Use
  Company Number: BR-UCBSA-2019001736

PATIENT
  Sex: Female
  Weight: 60 kg

DRUGS (2)
  1. LACOSAMIDE. [Suspect]
     Active Substance: LACOSAMIDE
     Indication: OFF LABEL USE
  2. LACOSAMIDE. [Suspect]
     Active Substance: LACOSAMIDE
     Indication: HYPERSENSITIVITY
     Dosage: 100 MG, 2X/DAY (BID)
     Route: 048
     Dates: start: 201811, end: 2018

REACTIONS (2)
  - Head injury [Recovered/Resolved]
  - Off label use [Unknown]

NARRATIVE: CASE EVENT DATE: 2018
